FAERS Safety Report 8333446-X (Version None)
Quarter: 2012Q2

REPORT INFORMATION
  Report Type: 
  Country: None (occurrence: None)
  Receive Date: 20120503
  Receipt Date: 20110131
  Transmission Date: 20120825
  Serious: Yes (Other)
  Sender: FDA-Public Use
  Company Number: US-TEVA-2010005702

PATIENT
  Sex: Female
  Weight: 113.5 kg

DRUGS (10)
  1. LUVOX [Concomitant]
     Dates: start: 20100901
  2. SEROQUEL XR [Concomitant]
  3. ASPIRIN [Concomitant]
     Dates: start: 20070101
  4. LAMICTAL [Concomitant]
     Dates: start: 20050101
  5. ACIPHEX [Concomitant]
     Dates: start: 20070101
  6. KLONOPIN [Concomitant]
     Dates: start: 20050101
  7. AMITRIPTYLINE HCL [Concomitant]
     Dates: start: 20100901
  8. LIPITOR [Concomitant]
     Dates: start: 20070101
  9. TOPROL-XL [Concomitant]
     Dates: start: 20000101
  10. NUVIGIL [Suspect]
     Indication: FATIGUE
     Route: 048
     Dates: start: 20101001

REACTIONS (4)
  - INCORRECT DOSE ADMINISTERED [None]
  - TREMOR [None]
  - HEART RATE INCREASED [None]
  - HEADACHE [None]
